FAERS Safety Report 14456918 (Version 1)
Quarter: 2018Q1

REPORT INFORMATION
  Report Type: Spontaneous
  Country: US (occurrence: US)
  Receive Date: 20180127
  Receipt Date: 20180127
  Transmission Date: 20180509
  Serious: No
  Sender: FDA-Public Use
  Company Number: None

PATIENT
  Age: 53 Year
  Sex: Female

DRUGS (1)
  1. VEMLIDY [Suspect]
     Active Substance: TENOFOVIR ALAFENAMIDE FUMARATE

REACTIONS (6)
  - Syncope [None]
  - Dizziness [None]
  - Dyspnoea [None]
  - Headache [None]
  - Cough [None]
  - Back pain [None]

NARRATIVE: CASE EVENT DATE: 20180126
